FAERS Safety Report 16801839 (Version 2)
Quarter: 2019Q3

REPORT INFORMATION
  Report Type: Report from Study
  Country: US (occurrence: US)
  Receive Date: 20190912
  Receipt Date: 20190923
  Transmission Date: 20191005
  Serious: No
  Sender: FDA-Public Use
  Company Number: US-SA-2019SA253125

PATIENT
  Age: 52 Year
  Sex: Female

DRUGS (1)
  1. DUPILUMAB [Suspect]
     Active Substance: DUPILUMAB
     Indication: CHRONIC RHINOSINUSITIS WITH NASAL POLYPS
     Dosage: 600 MG, 1X
     Route: 058
     Dates: start: 20190822, end: 20190822

REACTIONS (3)
  - Condition aggravated [Unknown]
  - Chronic rhinosinusitis with nasal polyps [Unknown]
  - Product use issue [Unknown]

NARRATIVE: CASE EVENT DATE: 20190822
